FAERS Safety Report 6035566-1 (Version None)
Quarter: 2009Q1

REPORT INFORMATION
  Report Type: 
  Country: None (occurrence: None)
  Receive Date: 20090112
  Receipt Date: 20090112
  Transmission Date: 20090719
  Serious: Yes (Hospitalization)
  Sender: FDA-Public Use
  Company Number: None

PATIENT
  Age: 27 Year
  Sex: Male
  Weight: 93.3 kg

DRUGS (1)
  1. CARBAMAZEPINE [Suspect]
     Indication: CONVULSION
     Dosage: 200 MG BID PO
     Route: 048
     Dates: end: 20080901

REACTIONS (6)
  - DRUG INEFFECTIVE [None]
  - HEADACHE [None]
  - MUSCULOSKELETAL STIFFNESS [None]
  - NECK PAIN [None]
  - RHABDOMYOLYSIS [None]
  - SPEECH DISORDER [None]
